FAERS Safety Report 5252102-8 (Version None)
Quarter: 2007Q1

REPORT INFORMATION
  Report Type: 
  Country: None (occurrence: None)
  Receive Date: 20070220
  Receipt Date: 20070202
  Transmission Date: 20070707
  Serious: Yes (Hospitalization)
  Sender: FDA-Public Use
  Company Number: THYM-11286

PATIENT
  Age: 48 Year
  Sex: Male

DRUGS (12)
  1. THYMOGLOBULIN [Suspect]
     Indication: RENAL TRANSPLANT
     Dosage: 75 MG QD IV
     Route: 042
     Dates: start: 20050828, end: 20050828
  2. THYMOGLOBULIN [Suspect]
     Indication: RENAL TRANSPLANT
     Dates: start: 20050829, end: 20050904
  3. TACROLIMUS [Suspect]
     Indication: IMMUNOSUPPRESSION
     Dosage: 0.1 MG QD PO
     Route: 048
     Dates: start: 20050829, end: 20050829
  4. TACROLIMUS [Suspect]
     Indication: IMMUNOSUPPRESSION
     Dates: start: 20050830
  5. BACTRIM [Concomitant]
  6. VALACYCLOVIR HCL [Concomitant]
  7. HEPARIN [Concomitant]
  8. ASPIRIN [Concomitant]
  9. CELLCEPT [Concomitant]
  10. SOLU-MEDROL [Concomitant]
  11. STEROIDS (PREDNISONE OR PREDNISOLONE) [Concomitant]
  12. STEROID (PREDNISONE/PREDNISOLONE) [Concomitant]

REACTIONS (2)
  - ANAEMIA [None]
  - B-CELL LYMPHOMA [None]
